FAERS Safety Report 7894189-X (Version None)
Quarter: 2011Q4

REPORT INFORMATION
  Report Type: 
  Country: None (occurrence: None)
  Receive Date: 20111104
  Receipt Date: 20111026
  Transmission Date: 20120403
  Serious: Yes (Other)
  Sender: FDA-Public Use
  Company Number: JP-ELI_LILLY_AND_COMPANY-JP201107005530

PATIENT
  Age: 60 Year
  Sex: Male

DRUGS (1)
  1. HUMALOG MIX 50/50 [Suspect]
     Route: 058

REACTIONS (2)
  - POOR QUALITY DRUG ADMINISTERED [None]
  - BLOOD GLUCOSE INCREASED [None]
